FAERS Safety Report 6392201-0 (Version None)
Quarter: 2009Q4

REPORT INFORMATION
  Report Type: 
  Country: None (occurrence: None)
  Receive Date: 20091007
  Receipt Date: 20090925
  Transmission Date: 20100525
  Serious: Yes (Other)
  Sender: FDA-Public Use
  Company Number: GB-CELGENEUS-167-20785-09092011

PATIENT
  Age: 65 Year

DRUGS (2)
  1. THALIDOMIDE PHARMION [Suspect]
     Indication: MULTIPLE MYELOMA
     Route: 048
     Dates: start: 20090422, end: 20090917
  2. PREDNISOLONE [Concomitant]
     Indication: MULTIPLE MYELOMA
     Route: 065
     Dates: start: 20090422, end: 20090917

REACTIONS (17)
  - BONE PAIN [None]
  - DEHYDRATION [None]
  - DIZZINESS [None]
  - FATIGUE [None]
  - FRACTURE [None]
  - HYPOTENSION [None]
  - MENTAL STATUS CHANGES [None]
  - NAUSEA [None]
  - OEDEMA PERIPHERAL [None]
  - PERIPHERAL MOTOR NEUROPATHY [None]
  - PERIPHERAL SENSORY NEUROPATHY [None]
  - PETECHIAE [None]
  - RENAL FAILURE [None]
  - SOMNOLENCE [None]
  - SPINAL COMPRESSION FRACTURE [None]
  - TREMOR [None]
  - VISION BLURRED [None]
